FAERS Safety Report 13112465 (Version 2)
Quarter: 2017Q1

REPORT INFORMATION
  Report Type: Spontaneous
  Country: US (occurrence: US)
  Receive Date: 20170113
  Receipt Date: 20170201
  Transmission Date: 20170428
  Serious: No
  Sender: FDA-Public Use
  Company Number: US-JNJFOC-20161210011

PATIENT
  Age: 31 Year
  Sex: Male
  Weight: 68.04 kg

DRUGS (3)
  1. HALDOL DECANOATE [Suspect]
     Active Substance: HALOPERIDOL DECANOATE
     Indication: BIPOLAR DISORDER
     Dosage: DOSE: 0.75 ML OF 100 MG SUSPENSION
     Route: 030
     Dates: start: 201602
  2. HALDOL DECANOATE [Suspect]
     Active Substance: HALOPERIDOL DECANOATE
     Indication: BORDERLINE PERSONALITY DISORDER
     Dosage: DOSE: 0.75 ML OF 100 MG SUSPENSION
     Route: 030
     Dates: start: 201602
  3. HALDOL DECANOATE [Suspect]
     Active Substance: HALOPERIDOL DECANOATE
     Indication: SCHIZOPHRENIA
     Dosage: DOSE: 0.75 ML OF 100 MG SUSPENSION
     Route: 030
     Dates: start: 201602

REACTIONS (5)
  - Catatonia [Not Recovered/Not Resolved]
  - Weight increased [Not Recovered/Not Resolved]
  - Antisocial behaviour [Not Recovered/Not Resolved]
  - Depression [Not Recovered/Not Resolved]
  - Hypersomnia [Not Recovered/Not Resolved]

NARRATIVE: CASE EVENT DATE: 201602
